FAERS Safety Report 18902264 (Version 1)
Quarter: 2021Q1

REPORT INFORMATION
  Report Type: Spontaneous
  Country: US (occurrence: US)
  Receive Date: 20210217
  Receipt Date: 20210217
  Transmission Date: 20210420
  Serious: Yes (Life-Threatening, Other)
  Sender: FDA-Public Use
  Company Number: US-PFIZER INC-2021152389

PATIENT
  Age: 28 Year
  Sex: Female

DRUGS (2)
  1. TOBRAMYCIN. [Concomitant]
     Active Substance: TOBRAMYCIN
     Indication: OSTEOMYELITIS
     Dosage: 2.4 G (G (INJECTED INTO THE TUBING)
     Route: 028
  2. VANCOMYCIN HCL [Suspect]
     Active Substance: VANCOMYCIN HYDROCHLORIDE
     Indication: OSTEOMYELITIS
     Dosage: 2 G (INJECTED INTO THE TUBING)
     Route: 028

REACTIONS (3)
  - Off label use [Unknown]
  - Product use issue [Unknown]
  - Septic shock [Recovering/Resolving]
